FAERS Safety Report 9163596 (Version 1)
Quarter: 2013Q1

REPORT INFORMATION
  Report Type: Spontaneous
  Country: US (occurrence: US)
  Receive Date: 20130314
  Receipt Date: 20130314
  Transmission Date: 20140127
  Serious: No
  Sender: FDA-Public Use
  Company Number: US-BAYER-2013-032232

PATIENT
  Age: 14 Year
  Sex: Male
  Weight: 41 kg

DRUGS (1)
  1. ALEVE [Suspect]
     Dosage: 15-20, DF ONCE
     Route: 048
     Dates: start: 20130309, end: 20130309

REACTIONS (1)
  - Incorrect dose administered [None]
